FAERS Safety Report 7478765-4 (Version None)
Quarter: 2011Q2

REPORT INFORMATION
  Report Type: 
  Country: None (occurrence: None)
  Receive Date: 20110513
  Receipt Date: 20110504
  Transmission Date: 20111010
  Serious: Yes (Hospitalization)
  Sender: FDA-Public Use
  Company Number: DE-ROCHE-650495

PATIENT
  Sex: Female
  Weight: 51 kg

DRUGS (8)
  1. DEXAMETHASONE [Concomitant]
     Dates: start: 20090807
  2. CAPECITABINE [Suspect]
     Dosage: FREQUENCY: DAY 1-14, REDUCED DOSE
     Route: 042
     Dates: start: 20090828
  3. PANTOPRAZOLE [Concomitant]
     Dates: start: 20080807
  4. DOCETAXEL [Suspect]
     Dosage: DOSE FORM: INFUSION.
     Route: 042
     Dates: start: 20090807, end: 20090811
  5. CISPLATIN [Suspect]
     Dosage: FREQUENCY: EVERY 3 WEEKS, REDUCED DOSE
     Route: 042
     Dates: start: 20090828
  6. DOCETAXEL [Suspect]
     Dosage: FREQUENCY: EVERY 3 WEEK, REDUCED DOSE
     Route: 042
     Dates: start: 20090828
  7. CAPECITABINE [Suspect]
     Dosage: GIVEN ON DAYS 1 AND 14. DOSE FORM: PILLS.
     Route: 042
     Dates: start: 20090807, end: 20090811
  8. CISPLATIN [Suspect]
     Dosage: DOSE FORM: INFUSION.
     Route: 042
     Dates: start: 20090807, end: 20090811

REACTIONS (1)
  - SOPOR [None]
